FAERS Safety Report 19479417 (Version 16)
Quarter: 2022Q4

REPORT INFORMATION
  Report Type: Report from Study
  Country: CA (occurrence: CA)
  Receive Date: 20210630
  Receipt Date: 20221013
  Transmission Date: 20230113
  Serious: Yes (Other)
  Sender: FDA-Public Use
  Company Number: CA-TAKEDA-CA202021827

PATIENT
  Age: 27 Year
  Sex: Female
  Weight: 57 kg

DRUGS (12)
  1. VELAGLUCERASE ALFA [Suspect]
     Active Substance: VELAGLUCERASE ALFA
     Indication: Gaucher^s disease
     Dosage: 1600 INTERNATIONAL UNIT, Q2WEEKS
     Route: 065
     Dates: start: 20130101
  2. VELAGLUCERASE ALFA [Suspect]
     Active Substance: VELAGLUCERASE ALFA
     Dosage: 1600 INTERNATIONAL UNIT, Q2WEEKS
     Route: 065
     Dates: start: 20130101
  3. VELAGLUCERASE ALFA [Suspect]
     Active Substance: VELAGLUCERASE ALFA
     Dosage: 2000 INTERNATIONAL UNIT, Q2WEEKS
     Route: 065
     Dates: start: 20130101
  4. VELAGLUCERASE ALFA [Suspect]
     Active Substance: VELAGLUCERASE ALFA
     Dosage: 1600 INTERNATIONAL UNIT, Q2WEEKS
     Route: 065
     Dates: start: 20130101
  5. VELAGLUCERASE ALFA [Suspect]
     Active Substance: VELAGLUCERASE ALFA
     Dosage: 60 INTERNATIONAL UNIT, Q2WEEKS
     Route: 065
     Dates: start: 20130101
  6. VELAGLUCERASE ALFA [Suspect]
     Active Substance: VELAGLUCERASE ALFA
     Dosage: 1600 INTERNATIONAL UNIT, Q2WEEKS
     Route: 065
     Dates: start: 20130101
  7. VELAGLUCERASE ALFA [Suspect]
     Active Substance: VELAGLUCERASE ALFA
     Dosage: 1600 INTERNATIONAL UNIT, Q2WEEKS
     Route: 050
     Dates: start: 20130101
  8. VELAGLUCERASE ALFA [Suspect]
     Active Substance: VELAGLUCERASE ALFA
     Dosage: 2000 INTERNATIONAL UNIT, Q2WEEKS
     Route: 050
     Dates: start: 20130101
  9. VELAGLUCERASE ALFA [Suspect]
     Active Substance: VELAGLUCERASE ALFA
     Dosage: 1600 INTERNATIONAL UNIT, Q2WEEKS
     Route: 065
     Dates: start: 20130101
  10. VELAGLUCERASE ALFA [Suspect]
     Active Substance: VELAGLUCERASE ALFA
     Dosage: 1600 INTERNATIONAL UNIT, Q2WEEKS
     Route: 042
     Dates: start: 20130101
  11. VELAGLUCERASE ALFA [Suspect]
     Active Substance: VELAGLUCERASE ALFA
     Dosage: 1600 INTERNATIONAL UNIT, Q2WEEKS
     Route: 050
     Dates: start: 20130101
  12. COVID-19 VACCINE NOS [Suspect]
     Active Substance: COVID-19 VACCINE NOS
     Indication: Product used for unknown indication
     Dosage: UNK
     Route: 065
     Dates: start: 202111

REACTIONS (40)
  - Bile duct stone [Recovered/Resolved]
  - Weight fluctuation [Not Recovered/Not Resolved]
  - Bone marrow disorder [Not Recovered/Not Resolved]
  - Blood iron decreased [Not Recovered/Not Resolved]
  - Constipation [Not Recovered/Not Resolved]
  - Condition aggravated [Recovered/Resolved]
  - Swelling [Not Recovered/Not Resolved]
  - Anorectal swelling [Not Recovered/Not Resolved]
  - Affective disorder [Not Recovered/Not Resolved]
  - Sleep disorder [Not Recovered/Not Resolved]
  - Anxiety [Not Recovered/Not Resolved]
  - Abdominal discomfort [Unknown]
  - Abdominal distension [Not Recovered/Not Resolved]
  - Decreased immune responsiveness [Unknown]
  - Biliary colic [Recovered/Resolved]
  - COVID-19 immunisation [Unknown]
  - Lethargy [Recovered/Resolved]
  - Pain in extremity [Recovered/Resolved]
  - Yellow skin [Recovered/Resolved]
  - Eye colour change [Recovered/Resolved]
  - Pain [Recovered/Resolved]
  - Palpitations [Unknown]
  - Chills [Recovering/Resolving]
  - Myalgia [Recovered/Resolved]
  - Productive cough [Recovering/Resolving]
  - Nasal congestion [Recovering/Resolving]
  - Oropharyngeal pain [Recovered/Resolved]
  - Blood pressure decreased [Recovered/Resolved]
  - Blood pressure increased [Recovered/Resolved]
  - Headache [Recovered/Resolved]
  - Pyrexia [Recovering/Resolving]
  - Arthralgia [Recovered/Resolved]
  - Fatigue [Not Recovered/Not Resolved]
  - Bone pain [Not Recovered/Not Resolved]
  - Nausea [Not Recovered/Not Resolved]
  - Abdominal pain [Not Recovered/Not Resolved]
  - Somnolence [Not Recovered/Not Resolved]
  - Inappropriate schedule of product administration [Unknown]
  - Product dose omission issue [Unknown]
  - Wrong dose [Unknown]

NARRATIVE: CASE EVENT DATE: 20200703
